FAERS Safety Report 25486609 (Version 1)
Quarter: 2025Q2

REPORT INFORMATION
  Report Type: Spontaneous
  Country: JP (occurrence: JP)
  Receive Date: 20250627
  Receipt Date: 20250627
  Transmission Date: 20250716
  Serious: Yes (Other)
  Sender: ASTELLAS
  Company Number: JP-ASTELLAS-2025-AER-030890

PATIENT
  Age: 6 Decade
  Sex: Male

DRUGS (2)
  1. VYLOY [Suspect]
     Active Substance: ZOLBETUXIMAB-CLZB
     Indication: Gastric cancer
     Route: 042
     Dates: start: 20250519, end: 20250519
  2. VYLOY [Suspect]
     Active Substance: ZOLBETUXIMAB-CLZB
     Route: 042
     Dates: start: 20250609

REACTIONS (3)
  - Myelosuppression [Recovered/Resolved]
  - Nausea [Recovered/Resolved]
  - Protein total decreased [Recovered/Resolved]

NARRATIVE: CASE EVENT DATE: 20250519
